FAERS Safety Report 9380559 (Version 1)
Quarter: 2013Q3

REPORT INFORMATION
  Report Type: Spontaneous
  Country: US (occurrence: US)
  Receive Date: 20130702
  Receipt Date: 20130702
  Transmission Date: 20140515
  Serious: No
  Sender: FDA-Public Use
  Company Number: US-009507513-1306USA012336

PATIENT
  Age: 20 Year
  Sex: Female
  Weight: 86.17 kg

DRUGS (1)
  1. IMPLANON [Suspect]
     Indication: CONTRACEPTION
     Dosage: 1 ROD, FOR 3 YEARS
     Route: 059
     Dates: start: 20120312

REACTIONS (3)
  - Hypoaesthesia [Unknown]
  - Hypomenorrhoea [Unknown]
  - Amenorrhoea [Recovered/Resolved]
